FAERS Safety Report 4626790-0 (Version None)
Quarter: 2005Q2

REPORT INFORMATION
  Report Type: 
  Country: None (occurrence: None)
  Receive Date: 20050401
  Receipt Date: 20050401
  Transmission Date: 20051028
  Serious: Yes (Life-Threatening)
  Sender: FDA-Public Use
  Company Number: None

PATIENT
  Age: 52 Year
  Sex: Female
  Weight: 58.9676 kg

DRUGS (1)
  1. DICYCLOMINE [Suspect]
     Indication: IRRITABLE BOWEL SYNDROME
     Dates: start: 20050325, end: 20050328

REACTIONS (4)
  - DRY MOUTH [None]
  - INSOMNIA [None]
  - NERVOUS SYSTEM DISORDER [None]
  - PSYCHOMOTOR HYPERACTIVITY [None]
